FAERS Safety Report 7581627-5 (Version None)
Quarter: 2011Q2

REPORT INFORMATION
  Report Type: 
  Country: None (occurrence: None)
  Receive Date: 20110629
  Receipt Date: 20110628
  Transmission Date: 20111010
  Serious: Yes (Life-Threatening)
  Sender: FDA-Public Use
  Company Number: CN-BAYER-2011-055152

PATIENT
  Age: 60 Year
  Sex: Male

DRUGS (2)
  1. MAGNEVIST [Suspect]
     Indication: NUCLEAR MAGNETIC RESONANCE IMAGING
     Dosage: UNK
     Dates: start: 20110601, end: 20110601
  2. MAGNEVIST [Suspect]
     Indication: COMPUTERISED TOMOGRAM

REACTIONS (2)
  - RASH [None]
  - CEREBRAL INFARCTION [None]
